FAERS Safety Report 16727318 (Version 1)
Quarter: 2019Q3

REPORT INFORMATION
  Report Type: Spontaneous
  Country: US (occurrence: US)
  Receive Date: 20190822
  Receipt Date: 20190822
  Transmission Date: 20191005
  Serious: No
  Sender: FDA-Public Use
  Company Number: US-SA-2019SA225915

PATIENT
  Sex: Male

DRUGS (1)
  1. PRALUENT [Suspect]
     Active Substance: ALIROCUMAB
     Indication: ESSENTIAL HYPERTENSION
     Dosage: 150 MG, QOW
     Route: 058
     Dates: start: 201904

REACTIONS (3)
  - Rash pruritic [Unknown]
  - Dyspnoea [Unknown]
  - Throat tightness [Unknown]

NARRATIVE: CASE EVENT DATE: 2019
